FAERS Safety Report 5576086-8 (Version None)
Quarter: 2007Q4

REPORT INFORMATION
  Report Type: 
  Country: None (occurrence: None)
  Receive Date: 20071228
  Receipt Date: 20071221
  Transmission Date: 20080405
  Serious: Yes (Other)
  Sender: FDA-Public Use
  Company Number: US-BRISTOL-MYERS SQUIBB COMPANY-14024467

PATIENT
  Sex: Female

DRUGS (2)
  1. IXEMPRA FOR INJ [Suspect]
     Indication: BREAST CANCER
     Route: 042
     Dates: start: 20071220, end: 20071220
  2. HYDRATION [Concomitant]

REACTIONS (2)
  - DYSPNOEA [None]
  - TACHYCARDIA [None]
